FAERS Safety Report 8618126-5 (Version None)
Quarter: 2012Q3

REPORT INFORMATION
  Report Type: 
  Country: None (occurrence: None)
  Receive Date: 20120824
  Receipt Date: 20101208
  Transmission Date: 20120928
  Serious: Yes (Hospitalization)
  Sender: FDA-Public Use
  Company Number: US-ELI_LILLY_AND_COMPANY-US201012002240

PATIENT
  Sex: Male
  Weight: 99.773 kg

DRUGS (1)
  1. PRASUGREL HYDROCHLORIDE [Suspect]
     Dates: start: 20101103

REACTIONS (1)
  - CHEST PAIN [None]
